FAERS Safety Report 9630891 (Version 1)
Quarter: 2013Q4

REPORT INFORMATION
  Report Type: Spontaneous
  Country: US (occurrence: None)
  Receive Date: 20131016
  Receipt Date: 20131016
  Transmission Date: 20140711
  Serious: No
  Sender: FDA-Public Use
  Company Number: None

PATIENT
  Age: 30 Year
  Sex: Female
  Weight: 48.99 kg

DRUGS (2)
  1. VANCOMYCIN [Suspect]
     Indication: CELLULITIS
     Dosage: INTO A VEIN
     Dates: start: 20130927
  2. VANCOMYCIN [Suspect]
     Indication: ARTHROPOD BITE
     Dosage: INTO A VEIN
     Dates: start: 20130927

REACTIONS (3)
  - Rash macular [None]
  - Pruritus [None]
  - Erythema [None]
